FAERS Safety Report 5570843-X (Version None)
Quarter: 2007Q4

REPORT INFORMATION
  Report Type: 
  Country: None (occurrence: None)
  Receive Date: 20071221
  Receipt Date: 20071210
  Transmission Date: 20080405
  Serious: Yes (Other)
  Sender: FDA-Public Use
  Company Number: GB-AMGEN-US257230

PATIENT
  Age: 57 Year
  Sex: Female

DRUGS (5)
  1. ENBREL [Suspect]
     Indication: DRUG USE FOR UNKNOWN INDICATION
     Route: 058
     Dates: start: 20060829
  2. VITAMINS NOS [Concomitant]
     Dosage: UNKNOWN
  3. METHOTREXATE [Concomitant]
     Route: 048
     Dates: start: 19980701
  4. CO-CODAMOL [Concomitant]
     Dosage: 2 DOSE EVERY 1 PRN
     Route: 048
  5. FOLIC ACID [Concomitant]
     Route: 048
     Dates: start: 19980701

REACTIONS (5)
  - DIZZINESS [None]
  - DYSPNOEA [None]
  - FOOD ALLERGY [None]
  - FOOD INTERACTION [None]
  - SWELLING FACE [None]
